FAERS Safety Report 9205401 (Version 2)
Quarter: 2013Q3

REPORT INFORMATION
  Report Type: Spontaneous
  Country: US (occurrence: US)
  Receive Date: 20130402
  Receipt Date: 20130717
  Transmission Date: 20140515
  Serious: Yes (Hospitalization, Disabling, Other)
  Sender: FDA-Public Use
  Company Number: US-009507513-1304USA000986

PATIENT
  Sex: Female
  Weight: 56.69 kg

DRUGS (2)
  1. NUVARING [Suspect]
     Indication: CONTRACEPTION
     Dosage: UNK
     Route: 067
     Dates: start: 2008, end: 200904
  2. NUVARING [Suspect]
     Dosage: UNK
     Route: 067
     Dates: start: 20060124, end: 20080131

REACTIONS (18)
  - Road traffic accident [Unknown]
  - Intracranial venous sinus thrombosis [Recovering/Resolving]
  - Sinusitis [Unknown]
  - Deep vein thrombosis [Unknown]
  - Sinus headache [Unknown]
  - Sinusitis [Unknown]
  - Vaginitis bacterial [Unknown]
  - Vomiting [Unknown]
  - Adverse drug reaction [Unknown]
  - Libido decreased [Unknown]
  - Hypercoagulation [Unknown]
  - Excoriation [Unknown]
  - Hyperglycaemia [Unknown]
  - Drug hypersensitivity [Unknown]
  - Drug hypersensitivity [Unknown]
  - Drug hypersensitivity [Unknown]
  - Cerebral haemorrhage [Unknown]
  - Adverse drug reaction [Recovering/Resolving]
